FAERS Safety Report 9894250 (Version 2)
Quarter: 2014Q2

REPORT INFORMATION
  Report Type: Spontaneous
  Country: US (occurrence: US)
  Receive Date: 20140213
  Receipt Date: 20140429
  Transmission Date: 20141212
  Serious: Yes (Disabling)
  Sender: FDA-Public Use
  Company Number: US-GLAXOSMITHKLINE-A1059849A

PATIENT
  Sex: Male

DRUGS (2)
  1. VOTRIENT [Suspect]
     Indication: PRODUCT USED FOR UNKNOWN INDICATION
     Dosage: 200MG UNKNOWN
     Route: 048
     Dates: end: 20140202
  2. UNKNOWN [Concomitant]

REACTIONS (6)
  - Confusional state [Unknown]
  - Crying [Unknown]
  - Decreased appetite [Unknown]
  - Abnormal behaviour [Unknown]
  - Withdrawal syndrome [Unknown]
  - Memory impairment [Unknown]
